FAERS Safety Report 4326841-7 (Version None)
Quarter: 2004Q1

REPORT INFORMATION
  Report Type: 
  Country: None (occurrence: None)
  Receive Date: 20040330
  Receipt Date: 20040330
  Transmission Date: 20041129
  Serious: Yes (Life-Threatening, Hospitalization)
  Sender: FDA-Public Use
  Company Number: None

PATIENT
  Age: 85 Year
  Sex: Female
  Weight: 80.7403 kg

DRUGS (8)
  1. GLUCOPHAGE [Suspect]
     Indication: DIABETES MELLITUS
     Dosage: 1000 MG PO BID
     Route: 048
     Dates: start: 20030501, end: 20030801
  2. HYDROCHLOROTHIAZIDE [Concomitant]
  3. MONOPRIL [Concomitant]
  4. PAXIL [Concomitant]
  5. AVANDIA [Concomitant]
  6. SENOKOT [Concomitant]
  7. ROXICET [Concomitant]
  8. ALEVE [Concomitant]

REACTIONS (6)
  - ACIDOSIS [None]
  - BLOOD SODIUM DECREASED [None]
  - DIALYSIS [None]
  - RENAL FAILURE ACUTE [None]
  - RENAL TUBULAR NECROSIS [None]
  - SYSTEMIC INFLAMMATORY RESPONSE SYNDROME [None]
